FAERS Safety Report 6511190-9 (Version None)
Quarter: 2009Q4

REPORT INFORMATION
  Report Type: 
  Country: None (occurrence: None)
  Receive Date: 20091217
  Receipt Date: 20091204
  Transmission Date: 20100525
  Serious: Yes (Hospitalization)
  Sender: FDA-Public Use
  Company Number: 002737

PATIENT
  Sex: Female
  Weight: 42.2 kg

DRUGS (11)
  1. CIMZIA [Suspect]
     Indication: CROHN'S DISEASE
     Dosage: SUBCUTANEOUS
     Route: 058
     Dates: start: 20081106
  2. ZOLOFT [Concomitant]
  3. NEXIUM [Concomitant]
  4. MULTI-VITAMIN [Concomitant]
  5. LOMOTIL [Concomitant]
  6. LEVSIN [Concomitant]
  7. FERROUS SULFATE TAB [Concomitant]
  8. CARDIZEM [Concomitant]
  9. ATIVAN [Concomitant]
  10. VITAMIN B-12 [Concomitant]
  11. MACROBID [Concomitant]

REACTIONS (2)
  - INCISION SITE INFECTION [None]
  - INTESTINAL RESECTION [None]
